FAERS Safety Report 4864441-0 (Version None)
Quarter: 2005Q4

REPORT INFORMATION
  Report Type: 
  Country: None (occurrence: None)
  Receive Date: 20051222
  Receipt Date: 20051005
  Transmission Date: 20060501
  Serious: Yes (Death, Other)
  Sender: FDA-Public Use
  Company Number: US-MERCK-0510USA04460

PATIENT
  Age: 49 Year
  Sex: Male
  Weight: 111 kg

DRUGS (6)
  1. VIOXX [Suspect]
     Indication: BURSITIS
     Route: 048
     Dates: start: 20000308, end: 20001230
  2. VIOXX [Suspect]
     Route: 048
     Dates: start: 20010926, end: 20011104
  3. IBUPROFEN [Concomitant]
     Route: 065
  4. PREDNISONE [Concomitant]
     Route: 065
  5. LORATADINE [Concomitant]
     Route: 065
  6. AMOXICILLIN [Concomitant]
     Route: 065

REACTIONS (7)
  - CARDIAC ARREST [None]
  - CARDIOVASCULAR DISORDER [None]
  - EXOSTOSIS [None]
  - HEART RATE IRREGULAR [None]
  - MYOCARDIAL INFARCTION [None]
  - PALPITATIONS [None]
  - TACHYARRHYTHMIA [None]
